FAERS Safety Report 7927043-5 (Version None)
Quarter: 2011Q4

REPORT INFORMATION
  Report Type: 
  Country: None (occurrence: None)
  Receive Date: 20111118
  Receipt Date: 20111107
  Transmission Date: 20120403
  Serious: Yes (Other)
  Sender: FDA-Public Use
  Company Number: US-BRISTOL-MYERS SQUIBB COMPANY-16219073

PATIENT
  Age: 73 Year
  Sex: Female

DRUGS (2)
  1. CETUXIMAB [Suspect]
     Indication: ANAL CANCER
     Dosage: FOLLOWED BY 250MG/M2,CONTINUED FOR 8 WEEKS;11 COURSES
  2. MITOMYCIN [Suspect]
     Indication: ANAL CANCER
     Dosage: DAY 1 OF EACH CYCLE

REACTIONS (3)
  - HAEMOLYTIC URAEMIC SYNDROME [None]
  - RASH [None]
  - THROMBOCYTOPENIA [None]
